FAERS Safety Report 9143900 (Version 1)
Quarter: 2013Q1

REPORT INFORMATION
  Report Type: Report from Study
  Country: CA (occurrence: CA)
  Receive Date: 20130306
  Receipt Date: 20130306
  Transmission Date: 20140127
  Serious: Yes (Other)
  Sender: FDA-Public Use
  Company Number: CA-ROCHE-1197763

PATIENT
  Sex: Male
  Weight: 97.1 kg

DRUGS (7)
  1. AVASTIN [Suspect]
     Indication: GLIOBLASTOMA
     Route: 042
     Dates: start: 20130108, end: 20130220
  2. TYLENOL [Concomitant]
     Route: 048
     Dates: start: 20130108, end: 20130220
  3. BENADRYL [Concomitant]
     Route: 048
     Dates: start: 20130108, end: 20130220
  4. TEGRETOL [Concomitant]
  5. KEPPRA [Concomitant]
  6. DECADRON [Concomitant]
  7. PANTOLOC [Concomitant]

REACTIONS (1)
  - Disease progression [Unknown]
